FAERS Safety Report 4654415-7 (Version None)
Quarter: 2005Q2

REPORT INFORMATION
  Report Type: 
  Country: None (occurrence: None)
  Receive Date: 20050404
  Receipt Date: 20050110
  Transmission Date: 20051028
  Serious: No
  Sender: FDA-Public Use
  Company Number: USA050187828

PATIENT
  Age: 54 Year
  Sex: Female

DRUGS (4)
  1. CYMBALTA [Suspect]
     Indication: DEPRESSION
     Dosage: 30 MG EVERY OTHER DAY
     Dates: start: 20041215
  2. KLONOPIN [Concomitant]
  3. DOXEPIN HCL [Concomitant]
  4. CARBATROL (CARBAMAZEPINE RIVOPHARM) [Concomitant]

REACTIONS (2)
  - LETHARGY [None]
  - PARAESTHESIA [None]
